FAERS Safety Report 17840995 (Version 1)
Quarter: 2020Q2

REPORT INFORMATION
  Report Type: Spontaneous
  Country: GB (occurrence: GB)
  Receive Date: 20200529
  Receipt Date: 20200529
  Transmission Date: 20200714
  Serious: Yes (Death, Hospitalization)
  Sender: FDA-Public Use
  Company Number: GB-PERRIGO-20GB007128

PATIENT
  Age: 76 Year
  Sex: Female

DRUGS (1)
  1. PARACETAMOL [Suspect]
     Active Substance: ACETAMINOPHEN
     Indication: PAIN
     Dosage: UNKNOWN.
     Route: 048
     Dates: start: 20200222, end: 20200225

REACTIONS (7)
  - Acute kidney injury [Fatal]
  - Metabolic acidosis [Fatal]
  - Hypotension [Fatal]
  - Acute hepatic failure [Fatal]
  - Hypophagia [Fatal]
  - Jaundice [Fatal]
  - Hypoglycaemia [Fatal]

NARRATIVE: CASE EVENT DATE: 20200225
